FAERS Safety Report 22345512 (Version 2)
Quarter: 2023Q2

REPORT INFORMATION
  Report Type: Spontaneous
  Country: CN (occurrence: None)
  Receive Date: 20230519
  Receipt Date: 20230526
  Transmission Date: 20230721
  Serious: Yes (Death, Other)
  Sender: FDA-Public Use
  Company Number: 2023A115330

PATIENT
  Age: 71 Year
  Sex: Male
  Weight: 50 kg

DRUGS (1)
  1. IMFINZI [Suspect]
     Active Substance: DURVALUMAB
     Dosage: 1000 MG/PERIOD.
     Route: 042
     Dates: start: 20230221

REACTIONS (4)
  - Death [Fatal]
  - Oedema [Unknown]
  - Dyspnoea [Unknown]
  - Inflammation [Unknown]
